FAERS Safety Report 7550488-2 (Version None)
Quarter: 2011Q2

REPORT INFORMATION
  Report Type: 
  Country: None (occurrence: None)
  Receive Date: 20110615
  Receipt Date: 20110614
  Transmission Date: 20111010
  Serious: Yes (Death)
  Sender: FDA-Public Use
  Company Number: US-AMGEN-USASP2011029544

PATIENT
  Age: 80 Year
  Sex: Male

DRUGS (2)
  1. NPLATE [Suspect]
     Indication: IDIOPATHIC THROMBOCYTOPENIC PURPURA
     Dates: start: 20100617
  2. CORTICOSTEROIDS [Concomitant]

REACTIONS (2)
  - HAEMOPTYSIS [None]
  - LUNG CARCINOMA CELL TYPE UNSPECIFIED STAGE IV [None]
